FAERS Safety Report 8236679-6 (Version None)
Quarter: 2012Q1

REPORT INFORMATION
  Report Type: 
  Country: None (occurrence: None)
  Receive Date: 20120326
  Receipt Date: 20120326
  Transmission Date: 20120608
  Serious: Yes (Disabling)
  Sender: FDA-Public Use
  Company Number: None

PATIENT
  Age: 43 Year
  Sex: Female
  Weight: 65.7716 kg

DRUGS (1)
  1. PREDNISONE TAB [Suspect]
     Indication: SARCOIDOSIS
     Dosage: VARIED FROM USE VARIED
     Dates: start: 20080101, end: 20120201

REACTIONS (4)
  - CARDIOVASCULAR DISORDER [None]
  - OSTEONECROSIS [None]
  - HIP ARTHROPLASTY [None]
  - OSTEOPOROSIS [None]
